FAERS Safety Report 10300392 (Version 2)
Quarter: 2014Q3

REPORT INFORMATION
  Report Type: Report from Study
  Country: DE (occurrence: DE)
  Receive Date: 20140712
  Receipt Date: 20140722
  Transmission Date: 20150326
  Serious: Yes (Hospitalization, Other)
  Sender: FDA-Public Use
  Company Number: DE-AMGEN-DEUNI2014051207

PATIENT
  Age: 70 Year
  Sex: Female
  Weight: 68.5 kg

DRUGS (14)
  1. DENOSUMAB [Suspect]
     Active Substance: DENOSUMAB
     Dosage: UNK
     Route: 058
  2. DENOSUMAB [Suspect]
     Active Substance: DENOSUMAB
     Dosage: UNK
     Route: 058
  3. FOLIC ACID. [Concomitant]
     Active Substance: FOLIC ACID
     Dosage: 680 MG, UNK
     Dates: start: 20131106
  4. CALCIUM [Concomitant]
     Active Substance: CALCIUM
     Dosage: 500 MG, QD
     Route: 048
     Dates: start: 20131024
  5. DENOSUMAB [Suspect]
     Active Substance: DENOSUMAB
     Dosage: UNK
     Route: 058
  6. IRINOTECAN [Concomitant]
     Active Substance: IRINOTECAN
     Dosage: 205 MG, UNK
     Dates: start: 20131106
  7. IBUPROFEN. [Concomitant]
     Active Substance: IBUPROFEN
     Dosage: 600 MG, AS NECESSARY
     Route: 048
     Dates: start: 201305
  8. NOVALGIN [Concomitant]
     Active Substance: METAMIZOLE SODIUM
     Dosage: 500 MG, 4 X 30DROPS
     Route: 048
     Dates: start: 201401
  9. 5-FU                               /00098801/ [Concomitant]
     Active Substance: FLUOROURACIL
     Dosage: 4000 MG, UNK
     Dates: start: 20131106
  10. BEVACIZUMAB [Concomitant]
     Active Substance: BEVACIZUMAB
     Dosage: 335 MG, UNK
     Dates: start: 20131106
  11. VITAMIN D                          /00107901/ [Concomitant]
     Active Substance: ERGOCALCIFEROL
     Dosage: 400 IE, QD
     Route: 048
     Dates: start: 20131024
  12. DENOSUMAB [Suspect]
     Active Substance: DENOSUMAB
     Indication: COLON CANCER METASTATIC
     Dosage: 120, Q4WK (EVERY 28 DAYS)
     Route: 058
     Dates: start: 20131024
  13. DENOSUMAB [Suspect]
     Active Substance: DENOSUMAB
     Dosage: UNK
     Route: 058
  14. DENOSUMAB [Suspect]
     Active Substance: DENOSUMAB
     Dosage: UNK
     Route: 058

REACTIONS (1)
  - Osteonecrosis of jaw [Recovering/Resolving]

NARRATIVE: CASE EVENT DATE: 20140611
